FAERS Safety Report 7079310-8 (Version None)
Quarter: 2010Q4

REPORT INFORMATION
  Report Type: 
  Country: None (occurrence: None)
  Receive Date: 20101102
  Receipt Date: 20100216
  Transmission Date: 20110411
  Serious: No
  Sender: FDA-Public Use
  Company Number: A0803524A

PATIENT
  Age: 71 Year
  Sex: Female

DRUGS (3)
  1. RYTHMOL SR [Suspect]
     Indication: ATRIAL FIBRILLATION
     Dosage: 225MG PER DAY
     Route: 048
     Dates: start: 20090810, end: 20100101
  2. LOPRESSOR [Concomitant]
     Route: 065
  3. COREG [Concomitant]
     Route: 065

REACTIONS (11)
  - CONSTIPATION [None]
  - COUGH [None]
  - DIZZINESS [None]
  - DRY EYE [None]
  - DRY MOUTH [None]
  - EAR DISORDER [None]
  - FATIGUE [None]
  - HEADACHE [None]
  - PANIC ATTACK [None]
  - THERAPEUTIC RESPONSE UNEXPECTED [None]
  - TINNITUS [None]
